FAERS Safety Report 12542233 (Version 1)
Quarter: 2016Q3

REPORT INFORMATION
  Report Type: Spontaneous
  Country: US (occurrence: US)
  Receive Date: 20160708
  Receipt Date: 20160708
  Transmission Date: 20161109
  Serious: No
  Sender: FDA-Public Use
  Company Number: US-009507513-1606USA014018

PATIENT
  Sex: Female

DRUGS (1)
  1. NEXPLANON [Suspect]
     Active Substance: ETONOGESTREL
     Dosage: 68 MG/ONE ROD PER 3 YEARS
     Route: 059

REACTIONS (2)
  - Device breakage [Recovered/Resolved]
  - No adverse event [Unknown]
